FAERS Safety Report 5187709-X (Version None)
Quarter: 2006Q4

REPORT INFORMATION
  Report Type: 
  Country: None (occurrence: None)
  Receive Date: 20061221
  Receipt Date: 20061213
  Transmission Date: 20070319
  Serious: Yes (Hospitalization)
  Sender: FDA-Public Use
  Company Number: IT-BAYER-200616355GDS

PATIENT
  Age: 64 Year
  Sex: Female

DRUGS (2)
  1. ACARBOSE [Suspect]
     Indication: DIABETES MELLITUS
     Route: 065
  2. INSULIN [Concomitant]
     Indication: DIABETES MELLITUS
     Route: 065

REACTIONS (6)
  - ABDOMINAL PAIN [None]
  - ABNORMAL FAECES [None]
  - DIARRHOEA [None]
  - PNEUMATOSIS INTESTINALIS [None]
  - RECTAL TENESMUS [None]
  - WEIGHT DECREASED [None]
